FAERS Safety Report 23467889 (Version 4)
Quarter: 2024Q2

REPORT INFORMATION
  Report Type: Spontaneous
  Country: DE (occurrence: DE)
  Receive Date: 20240201
  Receipt Date: 20240404
  Transmission Date: 20240715
  Serious: Yes (Hospitalization, Other)
  Sender: FDA-Public Use
  Company Number: DE-GILEAD-2024-0660411

PATIENT
  Age: 67 Year
  Sex: Male

DRUGS (6)
  1. LENACAPAVIR [Suspect]
     Active Substance: LENACAPAVIR
     Indication: HIV infection
     Dosage: 600 MG PO.  2X300 MG  PO ON DAY  2
     Route: 048
     Dates: start: 20231219, end: 20231220
  2. LENACAPAVIR [Suspect]
     Active Substance: LENACAPAVIR
     Indication: HIV infection
     Dosage: 2X927 MG  SC
     Route: 058
     Dates: start: 20231219, end: 20231220
  3. MARAVIROC [Concomitant]
     Active Substance: MARAVIROC
     Indication: HIV infection
     Dosage: UNK2 X 300  MG/DAY
     Route: 048
     Dates: start: 202310
  4. RUKOBIA [Concomitant]
     Active Substance: FOSTEMSAVIR TROMETHAMINE
     Indication: HIV infection
     Dosage: 2 X 600  MG/DAY
     Route: 048
  5. PIFELTRO [Concomitant]
     Active Substance: DORAVIRINE
     Indication: HIV infection
     Dosage: 1 X 100  MG/DAY
     Route: 048
     Dates: start: 202310
  6. LAMOTRIGINE [Concomitant]
     Active Substance: LAMOTRIGINE
     Dosage: 2 X 100  MG/DAY
     Route: 048

REACTIONS (3)
  - Nervous system disorder [Not Recovered/Not Resolved]
  - Delirium [Recovered/Resolved]
  - Hallucination, visual [Recovered/Resolved]

NARRATIVE: CASE EVENT DATE: 20231228
